FAERS Safety Report 20422033 (Version 1)
Quarter: 2022Q1

REPORT INFORMATION
  Report Type: Report from Study
  Country: US (occurrence: US)
  Receive Date: 20220203
  Receipt Date: 20220203
  Transmission Date: 20220424
  Serious: Yes (Hospitalization)
  Sender: FDA-Public Use
  Company Number: US-ABBVIE-22K-163-4258363-00

PATIENT
  Sex: Male

DRUGS (4)
  1. RINVOQ [Suspect]
     Active Substance: UPADACITINIB
     Indication: Rheumatoid arthritis
     Route: 048
  2. COVID-19 VACCINE [Concomitant]
     Indication: COVID-19 immunisation
     Dosage: 1ST DOSE
     Route: 065
     Dates: start: 20210201, end: 20210201
  3. COVID-19 VACCINE [Concomitant]
     Dosage: 2ND DOSE
     Route: 065
     Dates: start: 20210301, end: 20210301
  4. COVID-19 VACCINE [Concomitant]
     Dosage: 3RD DOSE
     Route: 065
     Dates: start: 20211130, end: 20211130

REACTIONS (5)
  - Pain [Recovering/Resolving]
  - Femur fracture [Recovering/Resolving]
  - Dizziness [Recovering/Resolving]
  - Hypotension [Recovering/Resolving]
  - Hip fracture [Recovering/Resolving]
